FAERS Safety Report 21220589 (Version 4)
Quarter: 2025Q2

REPORT INFORMATION
  Report Type: Report from Study
  Country: US (occurrence: US)
  Receive Date: 20220817
  Receipt Date: 20250618
  Transmission Date: 20250717
  Serious: No
  Sender: TAKEDA
  Company Number: US-TAKEDA-2021TUS028095

PATIENT
  Sex: Female

DRUGS (5)
  1. TEDUGLUTIDE [Suspect]
     Active Substance: TEDUGLUTIDE
     Indication: Short-bowel syndrome
     Dosage: 0.29 MILLILITER, QD
     Dates: start: 202104
  2. TEDUGLUTIDE [Suspect]
     Active Substance: TEDUGLUTIDE
     Dosage: 0.29 MILLILITER, QD
     Dates: start: 20210407
  3. TEDUGLUTIDE [Suspect]
     Active Substance: TEDUGLUTIDE
  4. TEDUGLUTIDE [Suspect]
     Active Substance: TEDUGLUTIDE
  5. LYRICA [Suspect]
     Active Substance: PREGABALIN
     Indication: Product used for unknown indication

REACTIONS (7)
  - Dizziness [Not Recovered/Not Resolved]
  - Feeling abnormal [Unknown]
  - Infusion site erythema [Unknown]
  - Infusion site mass [Unknown]
  - Infusion site urticaria [Recovering/Resolving]
  - Drug hypersensitivity [Unknown]
  - Diplopia [Unknown]
